FAERS Safety Report 4274296-3 (Version None)
Quarter: 2004Q1

REPORT INFORMATION
  Report Type: 
  Country: None (occurrence: None)
  Receive Date: 20040115
  Receipt Date: 20040108
  Transmission Date: 20041129
  Serious: Yes (Death)
  Sender: FDA-Public Use
  Company Number: ESP-BUS-156

PATIENT
  Age: 42 Year
  Sex: Male

DRUGS (11)
  1. BUSULFEX [Suspect]
     Indication: ACUTE MYELOID LEUKAEMIA
     Dosage: 240 MG DAILY IV
     Route: 042
     Dates: start: 20020725, end: 20020728
  2. CYCLOPHOSPHAMIDE [Concomitant]
  3. PHENYTOIN [Concomitant]
  4. ZOFRAN [Concomitant]
  5. ALLOPURINOL [Concomitant]
  6. PGE1 [Concomitant]
  7. MESNA [Concomitant]
  8. ANTIBIOTICS [Concomitant]
  9. ANTIFUNGALS [Concomitant]
  10. IMMUNOSUPPRESSANTS [Concomitant]
  11. GRASIN [Concomitant]

REACTIONS (5)
  - GENERAL PHYSICAL HEALTH DETERIORATION [None]
  - GRAFT VERSUS HOST DISEASE [None]
  - NEUTROPENIA [None]
  - TRANSPLANT REJECTION [None]
  - VENOOCCLUSIVE DISEASE [None]
